FAERS Safety Report 19418912 (Version 1)
Quarter: 2021Q2

REPORT INFORMATION
  Report Type: Report from Study
  Country: None (occurrence: US)
  Receive Date: 20210615
  Receipt Date: 20210615
  Transmission Date: 20210717
  Serious: Yes (Hospitalization, Other)
  Sender: FDA-Public Use
  Company Number: US-ABBVIE-21K-163-3886091-00

PATIENT
  Age: 71 Year
  Sex: Female
  Weight: 83.99 kg

DRUGS (4)
  1. SYNTHROID [Suspect]
     Active Substance: LEVOTHYROXINE SODIUM
     Indication: AUTOIMMUNE THYROIDITIS
     Route: 048
  2. MODERNA COVID?19 VACCINE [Suspect]
     Active Substance: CX-024414
     Dosage: MODERNA
     Route: 030
     Dates: start: 202102, end: 202102
  3. HUMIRA [Suspect]
     Active Substance: ADALIMUMAB
     Indication: RHEUMATOID ARTHRITIS
     Dosage: CITRATE FREE,MORE THAN FIVE YEARS
     Route: 058
  4. MODERNA COVID?19 VACCINE [Suspect]
     Active Substance: CX-024414
     Indication: COVID-19 IMMUNISATION
     Dosage: MODERNA
     Route: 030
     Dates: start: 202101, end: 202101

REACTIONS (7)
  - Blood sodium decreased [Recovering/Resolving]
  - Asthenia [Recovered/Resolved]
  - Vaccination site pain [Unknown]
  - Off label use [Unknown]
  - Addison^s disease [Not Recovered/Not Resolved]
  - Fatigue [Recovered/Resolved]
  - Balance disorder [Recovered/Resolved]

NARRATIVE: CASE EVENT DATE: 202009
